FAERS Safety Report 23381347 (Version 2)
Quarter: 2024Q1

REPORT INFORMATION
  Report Type: Report from Study
  Country: DE (occurrence: DE)
  Receive Date: 20240109
  Receipt Date: 20240123
  Transmission Date: 20240410
  Serious: Yes (Death, Hospitalization)
  Sender: FDA-Public Use
  Company Number: DE-ABBVIE-5576983

PATIENT
  Age: 83 Year
  Sex: Female

DRUGS (2)
  1. CARBIDOPA\LEVODOPA [Suspect]
     Active Substance: CARBIDOPA\LEVODOPA
     Indication: Parkinson^s disease
     Dosage: MD: 3.0 ML, CRD: 3.5 ML/H, CRN: 1.3 ML/H, ED: 1.5 M
     Route: 050
     Dates: start: 20190128
  2. CARBIDOPA\LEVODOPA [Suspect]
     Active Substance: CARBIDOPA\LEVODOPA

REACTIONS (4)
  - Death [Fatal]
  - Dysphagia [Not Recovered/Not Resolved]
  - Hypophagia [Not Recovered/Not Resolved]
  - Fluid intake reduced [Not Recovered/Not Resolved]

NARRATIVE: CASE EVENT DATE: 20240107
